FAERS Safety Report 10770560 (Version 2)
Quarter: 2016Q4

REPORT INFORMATION
  Report Type: Report from Study
  Country: MX (occurrence: MX)
  Receive Date: 20150206
  Receipt Date: 20161130
  Transmission Date: 20170206
  Serious: Yes (Hospitalization)
  Sender: FDA-Public Use
  Company Number: MX-SA-2015SA013496

PATIENT
  Age: 41 Year
  Sex: Male

DRUGS (12)
  1. DEXAMETHASONE. [Concomitant]
     Active Substance: DEXAMETHASONE
     Indication: PREMEDICATION
     Route: 042
     Dates: start: 20140305
  2. CHLOROPYRAMINE [Concomitant]
     Active Substance: CHLOROPYRAMINE
     Indication: PREMEDICATION
     Route: 042
     Dates: start: 20140305
  3. 5-FU [Suspect]
     Active Substance: FLUOROURACIL
     Indication: GASTROOESOPHAGEAL CANCER
     Dosage: MOST RECENT DOSE GIVEN PRIOR TO HAEMATEMESIS ONSET: 14/JUL/2014 (4584MG).?FORM: INFUSION
     Route: 042
     Dates: start: 20140305
  4. 5-FU [Suspect]
     Active Substance: FLUOROURACIL
     Indication: GASTROOESOPHAGEAL CANCER
     Dosage: MOST RECENT DOSE GIVEN PRIOR TO HAEMATEMESIS: 14/JUL/2014 (764MG)?FORM: INFUSION
     Route: 040
     Dates: start: 20140305
  5. FOLINIC ACID [Suspect]
     Active Substance: LEUCOVORIN
     Indication: GASTROOESOPHAGEAL CANCER
     Dosage: FORM: INFUSION?MOST RECENT DOSE GIVEN PRIOR TO HAEMATEMESIS ONSET: 14/JUL/2014 (764MG).
     Route: 042
     Dates: start: 20140305
  6. PALONOSETRON [Concomitant]
     Active Substance: PALONOSETRON
     Indication: PREMEDICATION
     Route: 042
     Dates: start: 20140305
  7. OXALIPLATIN. [Suspect]
     Active Substance: OXALIPLATIN
     Indication: GASTROOESOPHAGEAL CANCER
     Dosage: FORM: INFUSION?MOST RECENT DOSE GIVEN PRIOR TO HAEMATEMESIS ONSET: 14/JUL/2014 (162MG)
     Route: 042
     Dates: start: 20140305
  8. PLACEBO [Suspect]
     Active Substance: UNSPECIFIED INGREDIENT
     Indication: GASTROOESOPHAGEAL CANCER
     Route: 042
     Dates: start: 20140305, end: 20140421
  9. RANITIDINE. [Concomitant]
     Active Substance: RANITIDINE
     Indication: PREMEDICATION
     Route: 042
     Dates: start: 20140305
  10. KETOROLAC [Concomitant]
     Active Substance: KETOROLAC\KETOROLAC TROMETHAMINE
     Indication: PAIN
     Route: 060
  11. PLACEBO [Suspect]
     Active Substance: UNSPECIFIED INGREDIENT
     Indication: GASTROOESOPHAGEAL CANCER
     Route: 042
     Dates: start: 20140305, end: 20140421
  12. ONDANSETRON [Concomitant]
     Active Substance: ONDANSETRON
     Indication: PROPHYLAXIS OF NAUSEA AND VOMITING
     Route: 030
     Dates: start: 20140321

REACTIONS (1)
  - Haematemesis [Recovered/Resolved with Sequelae]

NARRATIVE: CASE EVENT DATE: 20140721
